FAERS Safety Report 18326165 (Version 1)
Quarter: 2020Q3

REPORT INFORMATION
  Report Type: Spontaneous
  Country: PL (occurrence: PL)
  Receive Date: 20200929
  Receipt Date: 20200929
  Transmission Date: 20201103
  Serious: Yes (Other)
  Sender: FDA-Public Use
  Company Number: PL-AMGEN-POLSP2020155038

PATIENT

DRUGS (5)
  1. TRASTUZUMAB. [Suspect]
     Active Substance: TRASTUZUMAB
     Indication: HER2 POSITIVE BREAST CANCER
  2. DOCETAXEL. [Concomitant]
     Active Substance: DOCETAXEL
     Indication: BREAST CANCER
     Dosage: 6 CYCLES
  3. CARBOPLATIN. [Concomitant]
     Active Substance: CARBOPLATIN
     Indication: BREAST CANCER
     Dosage: 6 CYCLES
  4. TRASTUZUMAB. [Suspect]
     Active Substance: TRASTUZUMAB
     Indication: BREAST CANCER
     Dosage: UNK (6 CYCLES)
     Route: 065
  5. PERTUZUMAB. [Concomitant]
     Active Substance: PERTUZUMAB
     Indication: BREAST CANCER
     Dosage: 6 CYCLES

REACTIONS (6)
  - Polyneuropathy [Unknown]
  - Diarrhoea [Unknown]
  - Febrile neutropenia [Unknown]
  - Off label use [Unknown]
  - Neutropenia [Unknown]
  - Ejection fraction decreased [Unknown]
